FAERS Safety Report 16819794 (Version 1)
Quarter: 2019Q3

REPORT INFORMATION
  Report Type: Spontaneous
  Country: ZA (occurrence: ZA)
  Receive Date: 20190917
  Receipt Date: 20190917
  Transmission Date: 20191005
  Serious: Yes (Other)
  Sender: FDA-Public Use
  Company Number: ZA-009507513-1909ZAF005894

PATIENT
  Sex: Female

DRUGS (1)
  1. IMPLANON [Suspect]
     Active Substance: ETONOGESTREL
     Dosage: UNK
     Route: 059
     Dates: start: 20140120

REACTIONS (2)
  - Unintended pregnancy [Recovered/Resolved]
  - Pregnancy with implant contraceptive [Recovered/Resolved]
